FAERS Safety Report 5091706-2 (Version None)
Quarter: 2006Q3

REPORT INFORMATION
  Report Type: 
  Country: None (occurrence: None)
  Receive Date: 20060829
  Receipt Date: 20060825
  Transmission Date: 20061208
  Serious: Yes (Other)
  Sender: FDA-Public Use
  Company Number: 2006UW16870

PATIENT

DRUGS (3)
  1. IRESSA [Suspect]
     Indication: OESOPHAGEAL ADENOCARCINOMA
     Route: 048
     Dates: end: 20060816
  2. PACLITAXEL [Suspect]
  3. CISPLATIN [Suspect]

REACTIONS (2)
  - ALANINE AMINOTRANSFERASE INCREASED [None]
  - ASPARTATE AMINOTRANSFERASE INCREASED [None]
